FAERS Safety Report 25123488 (Version 2)
Quarter: 2025Q2

REPORT INFORMATION
  Report Type: Report from Study
  Country: US (occurrence: US)
  Receive Date: 20250326
  Receipt Date: 20250609
  Transmission Date: 20250716
  Serious: Yes (Hospitalization, Other)
  Sender: BAYER HEALTHCARE PHARMACEUTICALS INC.
  Company Number: US-BAYER-2025A032619

PATIENT
  Age: 64 Year
  Sex: Male
  Weight: 92.971 kg

DRUGS (29)
  1. ADEMPAS [Suspect]
     Active Substance: RIOCIGUAT
     Indication: Pulmonary hypertension
     Dates: start: 20240910
  2. ADEMPAS [Suspect]
     Active Substance: RIOCIGUAT
     Indication: Pulmonary arterial hypertension
     Dosage: 1 MG, TID
     Route: 048
     Dates: start: 20211209
  3. ADEMPAS [Suspect]
     Active Substance: RIOCIGUAT
     Indication: Pulmonary hypertension
     Dosage: 0.5 MG, TID
     Route: 048
     Dates: start: 20250324
  4. FERROUS SULFATE [Concomitant]
     Active Substance: FERROUS SULFATE
  5. AZITHROMYCIN [Concomitant]
     Active Substance: AZITHROMYCIN
  6. RANOLAZINE [Concomitant]
     Active Substance: RANOLAZINE
  7. LEVETIRACETAM [Concomitant]
     Active Substance: LEVETIRACETAM
  8. BUDESONIDE [Concomitant]
     Active Substance: BUDESONIDE
  9. TORSEMIDE [Concomitant]
     Active Substance: TORSEMIDE
  10. AMBRISENTAN [Concomitant]
     Active Substance: AMBRISENTAN
  11. SYMBICORT [Concomitant]
     Active Substance: BUDESONIDE\FORMOTEROL FUMARATE DIHYDRATE
  12. ACETAMINOPHEN [Concomitant]
     Active Substance: ACETAMINOPHEN
  13. OMEPRAZOLE [Concomitant]
     Active Substance: OMEPRAZOLE
  14. OXYGEN [Concomitant]
     Active Substance: OXYGEN
  15. ATORVASTATIN CALCIUM [Concomitant]
     Active Substance: ATORVASTATIN CALCIUM
  16. WINREVAIR [Concomitant]
     Active Substance: SOTATERCEPT-CSRK
  17. SPIRIVA RESPIMAT [Concomitant]
     Active Substance: TIOTROPIUM BROMIDE
  18. KEPPRA [Concomitant]
     Active Substance: LEVETIRACETAM
  19. OXCARBAZEPINE [Concomitant]
     Active Substance: OXCARBAZEPINE
  20. PULMICORT TURBUHALER [Concomitant]
     Active Substance: BUDESONIDE
  21. ELIQUIS [Concomitant]
     Active Substance: APIXABAN
  22. GABAPENTIN [Concomitant]
     Active Substance: GABAPENTIN
  23. ARFORMOTEROL TARTRATE [Concomitant]
     Active Substance: ARFORMOTEROL TARTRATE
  24. ALBUTEROL SULFATE [Concomitant]
     Active Substance: ALBUTEROL SULFATE
  25. TAMSULOSIN HYDROCHLORIDE [Concomitant]
     Active Substance: TAMSULOSIN HYDROCHLORIDE
  26. ALBUTEROL\IPRATROPIUM [Concomitant]
     Active Substance: ALBUTEROL\IPRATROPIUM
  27. MIDODRINE HYDROCHLORIDE [Concomitant]
     Active Substance: MIDODRINE HYDROCHLORIDE
  28. IBUPROFEN [Concomitant]
     Active Substance: IBUPROFEN
  29. ALBUTEROL SULFATE [Concomitant]
     Active Substance: ALBUTEROL SULFATE

REACTIONS (7)
  - Hypotension [None]
  - Loss of consciousness [None]
  - Hospitalisation [Unknown]
  - Cerebrovascular disorder [None]
  - Syncope [None]
  - Dizziness [None]
  - Blood pressure decreased [None]

NARRATIVE: CASE EVENT DATE: 20240521
